FAERS Safety Report 9129956 (Version 2)
Quarter: 2013Q1

REPORT INFORMATION
  Report Type: Spontaneous
  Country: US (occurrence: US)
  Receive Date: 20130228
  Receipt Date: 20130318
  Transmission Date: 20140127
  Serious: Yes (Other)
  Sender: FDA-Public Use
  Company Number: US-ASTRAZENECA-2013SE11399

PATIENT
  Age: 77 Year
  Sex: Female

DRUGS (12)
  1. ATENOLOL [Suspect]
     Indication: ATRIAL FIBRILLATION
     Route: 048
     Dates: start: 2011
  2. FLECAINIDE [Suspect]
     Indication: ATRIAL FIBRILLATION
     Route: 065
     Dates: start: 2011
  3. REVLIMID [Suspect]
     Indication: PLASMA CELL MYELOMA
     Dosage: 15 MG DAILY FOR 21 DAYS AND THEN ONE WEEK OFF FROM 22-OCT-2011
     Route: 048
  4. MULTIVITAMINS [Concomitant]
  5. DEXAMETHASONE [Concomitant]
  6. SOTALOL [Concomitant]
  7. ASPIRIN [Concomitant]
  8. CALCIUM [Concomitant]
  9. VITAMIN D [Concomitant]
  10. FISH OIL [Concomitant]
  11. ATIVAN [Concomitant]
     Indication: INSOMNIA
     Dosage: AT BEDTIME SOME NIGHTS WHEN SHE CANNOT SLEEP
  12. IMODIUM [Concomitant]
     Indication: DIARRHOEA

REACTIONS (4)
  - Hypersensitivity [Unknown]
  - Insomnia [Unknown]
  - Diarrhoea [Unknown]
  - Rash [Unknown]
